FAERS Safety Report 22996616 (Version 4)
Quarter: 2023Q4

REPORT INFORMATION
  Report Type: Spontaneous
  Country: US (occurrence: US)
  Receive Date: 20230928
  Receipt Date: 20231207
  Transmission Date: 20240109
  Serious: No
  Sender: FDA-Public Use
  Company Number: US-DAIICHI SANKYO, INC.-DSU-2023-139218AA

PATIENT
  Sex: Male

DRUGS (2)
  1. TURALIO [Suspect]
     Active Substance: PEXIDARTINIB HYDROCHLORIDE
     Indication: Synovitis
     Dosage: 250 MG, BID
     Route: 048
     Dates: start: 20230914
  2. TURALIO [Suspect]
     Active Substance: PEXIDARTINIB HYDROCHLORIDE
     Indication: Giant cell tumour of tendon sheath

REACTIONS (9)
  - Feeling abnormal [Recovered/Resolved]
  - Increased appetite [Recovered/Resolved]
  - Brain fog [Recovered/Resolved]
  - Fatigue [Recovered/Resolved]
  - Cognitive disorder [Recovered/Resolved]
  - Amnesia [Recovered/Resolved]
  - Mental impairment [Recovered/Resolved]
  - Adverse drug reaction [Unknown]
  - Therapy cessation [Unknown]
